FAERS Safety Report 5743713-1 (Version None)
Quarter: 2008Q2

REPORT INFORMATION
  Report Type: 
  Country: None (occurrence: None)
  Receive Date: 20080520
  Receipt Date: 20080509
  Transmission Date: 20081010
  Serious: Yes (Hospitalization)
  Sender: FDA-Public Use
  Company Number: US-ROCHE-563370

PATIENT
  Sex: Female
  Weight: 69.4 kg

DRUGS (7)
  1. XELODA [Suspect]
     Dosage: DOSAGE REGIMEN REPORTED AS 5/DAY
     Route: 065
     Dates: start: 20080101, end: 20080427
  2. XELODA [Suspect]
     Route: 065
     Dates: start: 20080512
  3. TYKERB [Suspect]
     Indication: BREAST CANCER
     Dosage: DOSAGE REGIMEN REPORTED AS 5/DAY
     Route: 065
     Dates: start: 20080101, end: 20080430
  4. SYNTHROID [Concomitant]
  5. ZOLOFT [Concomitant]
  6. TRAZODONE HCL [Concomitant]
  7. ARIMIDEX [Concomitant]

REACTIONS (3)
  - DIARRHOEA [None]
  - PANCREATITIS [None]
  - VOMITING [None]
